FAERS Safety Report 5308375-6 (Version None)
Quarter: 2007Q2

REPORT INFORMATION
  Report Type: 
  Country: None (occurrence: None)
  Receive Date: 20070420
  Receipt Date: 20070413
  Transmission Date: 20071010
  Serious: Yes (Hospitalization)
  Sender: FDA-Public Use
  Company Number: S07-USA-01140-01

PATIENT
  Sex: Female

DRUGS (6)
  1. THYROID TAB [Suspect]
     Indication: HYPOTHYROIDISM
     Dosage: 90 MG QD PO
     Route: 048
     Dates: start: 20050101
  2. THYROID TAB [Suspect]
     Indication: HYPOTHYROIDISM
     Dates: start: 19870101, end: 20050101
  3. ATENOLOL [Suspect]
     Indication: HEART RATE IRREGULAR
     Dosage: 25 MG QD
     Dates: start: 20060701
  4. ZETIA [Concomitant]
  5. VYTORIN [Concomitant]
  6. ZOCOR [Concomitant]

REACTIONS (6)
  - CHEST PAIN [None]
  - CORONARY ARTERIAL STENT INSERTION [None]
  - CORONARY ARTERY OCCLUSION [None]
  - DIZZINESS [None]
  - DYSPNOEA [None]
  - HEART RATE IRREGULAR [None]
